FAERS Safety Report 5549237-9 (Version None)
Quarter: 2007Q4

REPORT INFORMATION
  Report Type: 
  Country: None (occurrence: None)
  Receive Date: 20071210
  Receipt Date: 20071127
  Transmission Date: 20080405
  Serious: Yes (Hospitalization)
  Sender: FDA-Public Use
  Company Number: 230676J07USA

PATIENT
  Age: 24 Year
  Sex: Female
  Weight: 81.1939 kg

DRUGS (6)
  1. REBIF [Suspect]
     Indication: MULTIPLE SCLEROSIS
     Dosage: 44 MCG, 3 IN 1 WEEKS, SUBCUTANEOUS
     Route: 058
     Dates: start: 20070924
  2. PROVIGIL [Concomitant]
  3. POTASSIUM (POTASSIUM) [Concomitant]
  4. LYRICA [Concomitant]
  5. CYMBALTA [Concomitant]
  6. RESTORIL [Concomitant]

REACTIONS (3)
  - BACK PAIN [None]
  - DYSURIA [None]
  - PNEUMONIA [None]
